FAERS Safety Report 24120614 (Version 1)
Quarter: 2024Q3

REPORT INFORMATION
  Report Type: Spontaneous
  Country: US (occurrence: None)
  Receive Date: 20240718
  Receipt Date: 20240718
  Transmission Date: 20241017
  Serious: Yes (Other)
  Sender: Public
  Company Number: None

PATIENT
  Age: 23 Year
  Sex: Female
  Weight: 94.5 kg

DRUGS (1)
  1. MICONAZOLE [Suspect]
     Active Substance: MICONAZOLE\MICONAZOLE NITRATE
     Dosage: FREQUENCY : AT BEDTIME;?
     Route: 067
     Dates: start: 20240718

REACTIONS (2)
  - Chemical burn of genitalia [None]
  - Vulvovaginal burning sensation [None]

NARRATIVE: CASE EVENT DATE: 20240718
